FAERS Safety Report 8723169 (Version 2)
Quarter: 2013Q2

REPORT INFORMATION
  Report Type: Report from Study
  Country: JP (occurrence: JP)
  Receive Date: 20120814
  Receipt Date: 20130509
  Transmission Date: 20140414
  Serious: Yes (Hospitalization)
  Sender: FDA-Public Use
  Company Number: JP-MERCK-1208JPN004855

PATIENT
  Age: 67 Year
  Sex: Male
  Weight: 65 kg

DRUGS (20)
  1. PEGINTRON [Suspect]
     Indication: CHRONIC HEPATITIS C
     Dosage: 1.5 MICROGRAM PER KILOGRAM, QW
     Route: 058
     Dates: start: 20110411, end: 20120919
  2. REBETOL [Suspect]
     Indication: CHRONIC HEPATITIS C
     Dosage: 800 MG, QD
     Route: 048
     Dates: start: 20120411, end: 20120424
  3. REBETOL [Suspect]
     Dosage: 400 MG, QD
     Route: 048
     Dates: start: 20120425, end: 20120501
  4. REBETOL [Suspect]
     Dosage: 200 MG, QD
     Route: 048
     Dates: start: 20120502, end: 20120509
  5. REBETOL [Suspect]
     Dosage: 200 MG, QOD
     Dates: start: 20120510, end: 20120912
  6. REBETOL [Suspect]
     Dosage: 400 MG, QD
     Route: 048
     Dates: start: 20120913, end: 20120926
  7. TELAVIC [Suspect]
     Indication: CHRONIC HEPATITIS C
     Dosage: 2250 MG, QD
     Route: 048
     Dates: start: 20120411, end: 20120509
  8. TELAVIC [Suspect]
     Dosage: 1500 MG, QD
     Route: 048
     Dates: start: 20120510, end: 20120530
  9. TELAVIC [Suspect]
     Dosage: 750 MG, QD
     Route: 048
     Dates: start: 20120531, end: 20120615
  10. LOXONIN [Concomitant]
     Indication: PROPHYLAXIS
     Dosage: 60 MG, QD
     Route: 048
  11. LOXONIN [Concomitant]
     Dosage: 60 MG, PRN
     Route: 048
  12. AMOBAN [Concomitant]
     Indication: PROPHYLAXIS
     Dosage: 7.5 MG, QD
     Route: 048
  13. DIOVAN [Concomitant]
     Indication: HYPERTENSION
     Dosage: 40 MG, QD
     Route: 048
  14. EPADEL S [Concomitant]
     Indication: DYSLIPIDAEMIA
     Dosage: 1800 MG, QD, POR
     Route: 048
     Dates: start: 20120411
  15. NAUZELIN [Concomitant]
     Indication: PROPHYLAXIS
     Dosage: 30 MG, QD, POR
     Route: 048
     Dates: start: 20120425
  16. ACINON [Concomitant]
     Indication: PROPHYLAXIS
     Dosage: 150 MG, QD
     Route: 048
     Dates: start: 20120426
  17. MUCOSTA [Concomitant]
     Indication: PROPHYLAXIS
     Dosage: 200 MG, QD
     Route: 048
     Dates: start: 20120614, end: 20120703
  18. MUCOSTA [Concomitant]
     Dosage: 100 MG, PRN
     Route: 048
     Dates: start: 20120810, end: 20120812
  19. ADALAT CR [Concomitant]
     Indication: PROPHYLAXIS
     Dosage: 1 DF, QD
     Route: 048
     Dates: start: 20120802
  20. BIOFERMIN R [Concomitant]
     Indication: PROPHYLAXIS
     Dosage: 3 DF, QD
     Route: 048
     Dates: start: 20120810, end: 20120812

REACTIONS (1)
  - Seborrhoeic dermatitis [Recovering/Resolving]
